FAERS Safety Report 8019787-4 (Version None)
Quarter: 2012Q1

REPORT INFORMATION
  Report Type: 
  Country: None (occurrence: None)
  Receive Date: 20120103
  Receipt Date: 20111228
  Transmission Date: 20120608
  Serious: Yes (Death, Hospitalization, Other)
  Sender: FDA-Public Use
  Company Number: CA-ABBOTT-11P-028-0877222-00

PATIENT
  Sex: Male

DRUGS (2)
  1. OXYGEN THERAPY [Concomitant]
     Indication: LUNG DISORDER
  2. LUPRON DEPOT [Suspect]
     Indication: PROSTATE CANCER
     Route: 030
     Dates: start: 20061206, end: 20110811

REACTIONS (7)
  - ARTHRALGIA [None]
  - LUNG DISORDER [None]
  - OXYGEN SATURATION DECREASED [None]
  - PULMONARY OEDEMA [None]
  - GASTROINTESTINAL DISORDER [None]
  - ABDOMINAL HERNIA [None]
  - RESPIRATORY FAILURE [None]
